FAERS Safety Report 16840346 (Version 1)
Quarter: 2019Q3

REPORT INFORMATION
  Report Type: Spontaneous
  Country: GB (occurrence: GB)
  Receive Date: 20190923
  Receipt Date: 20190923
  Transmission Date: 20191005
  Serious: Yes (Other)
  Sender: FDA-Public Use
  Company Number: GB-PFIZER INC-2019402994

PATIENT
  Age: 66 Year
  Sex: Female

DRUGS (1)
  1. FRAGMIN [Suspect]
     Active Substance: DALTEPARIN SODIUM
     Indication: CATHETER SITE THROMBOSIS
     Dosage: 12500 IU, UNK

REACTIONS (5)
  - Epistaxis [Unknown]
  - Contusion [Unknown]
  - Incorrect dose administered [Unknown]
  - Catheter site haemorrhage [Unknown]
  - Headache [Unknown]

NARRATIVE: CASE EVENT DATE: 20181116
